FAERS Safety Report 22393492 (Version 7)
Quarter: 2024Q2

REPORT INFORMATION
  Report Type: Spontaneous
  Country: US (occurrence: US)
  Receive Date: 20230601
  Receipt Date: 20240520
  Transmission Date: 20240716
  Serious: No
  Sender: FDA-Public Use
  Company Number: US-BRISTOL-MYERS SQUIBB COMPANY-2023-077063

PATIENT
  Age: 65 Year
  Sex: Female

DRUGS (2)
  1. REVLIMID [Suspect]
     Active Substance: LENALIDOMIDE
     Indication: Plasma cell myeloma
     Route: 048
     Dates: start: 202305
  2. REVLIMID [Suspect]
     Active Substance: LENALIDOMIDE
     Route: 048

REACTIONS (6)
  - Product dose omission issue [Unknown]
  - Contusion [Unknown]
  - Nasopharyngitis [Unknown]
  - Skin papilloma [Unknown]
  - Neutrophil count decreased [Unknown]
  - Constipation [Unknown]

NARRATIVE: CASE EVENT DATE: 20230510
